FAERS Safety Report 14299704 (Version 1)
Quarter: 2017Q4

REPORT INFORMATION
  Report Type: Spontaneous
  Country: IN (occurrence: IN)
  Receive Date: 20171219
  Receipt Date: 20171219
  Transmission Date: 20180321
  Serious: Yes (Hospitalization, Other)
  Sender: FDA-Public Use
  Company Number: IN-MACLEODS PHARMACEUTICALS US LTD-MAC2017006786

PATIENT

DRUGS (1)
  1. QUETIAPINE TABLET [Suspect]
     Active Substance: QUETIAPINE
     Indication: SCHIZOPHRENIA
     Dosage: UNK
     Route: 048

REACTIONS (5)
  - Dyskinesia [Recovered/Resolved]
  - Speech disorder [None]
  - Joint dislocation [Recovered/Resolved]
  - Dysphagia [Recovered/Resolved]
  - Oromandibular dystonia [Unknown]
